FAERS Safety Report 26129970 (Version 2)
Quarter: 2025Q4

REPORT INFORMATION
  Report Type: Spontaneous
  Country: US (occurrence: US)
  Receive Date: 20251208
  Receipt Date: 20251217
  Transmission Date: 20260118
  Serious: No
  Sender: ELI LILLY AND COMPANY
  Company Number: US-ELI_LILLY_AND_COMPANY-US202511027313

PATIENT
  Age: 75 Year

DRUGS (41)
  1. ZEPBOUND [Suspect]
     Active Substance: TIRZEPATIDE
     Indication: Coronary artery disease
     Dosage: 7.5 MG, UNKNOWN
     Route: 058
  2. ZEPBOUND [Suspect]
     Active Substance: TIRZEPATIDE
     Indication: Coronary artery disease
     Dosage: 7.5 MG, UNKNOWN
     Route: 058
  3. ZEPBOUND [Suspect]
     Active Substance: TIRZEPATIDE
     Indication: Coronary artery disease
     Dosage: 7.5 MG, UNKNOWN
     Route: 058
  4. ZEPBOUND [Suspect]
     Active Substance: TIRZEPATIDE
     Indication: Coronary artery disease
     Dosage: 7.5 MG, UNKNOWN
     Route: 058
  5. ZEPBOUND [Suspect]
     Active Substance: TIRZEPATIDE
     Indication: Hypolipidaemia
  6. ZEPBOUND [Suspect]
     Active Substance: TIRZEPATIDE
     Indication: Hypolipidaemia
  7. ZEPBOUND [Suspect]
     Active Substance: TIRZEPATIDE
     Indication: Hypolipidaemia
  8. ZEPBOUND [Suspect]
     Active Substance: TIRZEPATIDE
     Indication: Hypolipidaemia
  9. ZEPBOUND [Suspect]
     Active Substance: TIRZEPATIDE
     Indication: Diabetes mellitus
  10. ZEPBOUND [Suspect]
     Active Substance: TIRZEPATIDE
     Indication: Diabetes mellitus
  11. ZEPBOUND [Suspect]
     Active Substance: TIRZEPATIDE
     Indication: Diabetes mellitus
  12. ZEPBOUND [Suspect]
     Active Substance: TIRZEPATIDE
     Indication: Diabetes mellitus
  13. ZEPBOUND [Suspect]
     Active Substance: TIRZEPATIDE
     Indication: Hypertension
  14. ZEPBOUND [Suspect]
     Active Substance: TIRZEPATIDE
     Indication: Hypertension
  15. ZEPBOUND [Suspect]
     Active Substance: TIRZEPATIDE
     Indication: Hypertension
  16. ZEPBOUND [Suspect]
     Active Substance: TIRZEPATIDE
     Indication: Hypertension
  17. ZEPBOUND [Suspect]
     Active Substance: TIRZEPATIDE
     Indication: Weight control
  18. ZEPBOUND [Suspect]
     Active Substance: TIRZEPATIDE
     Indication: Weight control
  19. ZEPBOUND [Suspect]
     Active Substance: TIRZEPATIDE
     Indication: Weight control
  20. ZEPBOUND [Suspect]
     Active Substance: TIRZEPATIDE
     Indication: Weight control
  21. ZEPBOUND [Suspect]
     Active Substance: TIRZEPATIDE
     Indication: Coronary artery disease
     Dosage: 10 MG, UNKNOWN
     Route: 058
  22. ZEPBOUND [Suspect]
     Active Substance: TIRZEPATIDE
     Indication: Coronary artery disease
     Dosage: 10 MG, UNKNOWN
     Route: 058
  23. ZEPBOUND [Suspect]
     Active Substance: TIRZEPATIDE
     Indication: Coronary artery disease
     Dosage: 10 MG, UNKNOWN
     Route: 058
  24. ZEPBOUND [Suspect]
     Active Substance: TIRZEPATIDE
     Indication: Coronary artery disease
     Dosage: 10 MG, UNKNOWN
     Route: 058
  25. ZEPBOUND [Suspect]
     Active Substance: TIRZEPATIDE
     Indication: Hypolipidaemia
  26. ZEPBOUND [Suspect]
     Active Substance: TIRZEPATIDE
     Indication: Hypolipidaemia
  27. ZEPBOUND [Suspect]
     Active Substance: TIRZEPATIDE
     Indication: Hypolipidaemia
  28. ZEPBOUND [Suspect]
     Active Substance: TIRZEPATIDE
     Indication: Hypolipidaemia
  29. ZEPBOUND [Suspect]
     Active Substance: TIRZEPATIDE
     Indication: Diabetes mellitus
  30. ZEPBOUND [Suspect]
     Active Substance: TIRZEPATIDE
     Indication: Diabetes mellitus
  31. ZEPBOUND [Suspect]
     Active Substance: TIRZEPATIDE
     Indication: Diabetes mellitus
  32. ZEPBOUND [Suspect]
     Active Substance: TIRZEPATIDE
     Indication: Diabetes mellitus
  33. ZEPBOUND [Suspect]
     Active Substance: TIRZEPATIDE
     Indication: Hypertension
  34. ZEPBOUND [Suspect]
     Active Substance: TIRZEPATIDE
     Indication: Hypertension
  35. ZEPBOUND [Suspect]
     Active Substance: TIRZEPATIDE
     Indication: Hypertension
  36. ZEPBOUND [Suspect]
     Active Substance: TIRZEPATIDE
     Indication: Hypertension
  37. ZEPBOUND [Suspect]
     Active Substance: TIRZEPATIDE
     Indication: Weight control
  38. ZEPBOUND [Suspect]
     Active Substance: TIRZEPATIDE
     Indication: Weight control
  39. ZEPBOUND [Suspect]
     Active Substance: TIRZEPATIDE
     Indication: Weight control
  40. ZEPBOUND [Suspect]
     Active Substance: TIRZEPATIDE
     Indication: Weight control
  41. LIPITOR [Concomitant]
     Active Substance: ATORVASTATIN CALCIUM
     Indication: Hypertension
     Dosage: UNK, UNKNOWN
     Route: 065

REACTIONS (2)
  - Extra dose administered [Unknown]
  - Constipation [Unknown]
